FAERS Safety Report 5188613-3 (Version None)
Quarter: 2006Q4

REPORT INFORMATION
  Report Type: 
  Country: None (occurrence: None)
  Receive Date: 20061214
  Receipt Date: 20061130
  Transmission Date: 20070319
  Serious: Yes (Hospitalization, Other)
  Sender: FDA-Public Use
  Company Number: L06-USA-04934-01

PATIENT
  Age: 23 Year
  Sex: Female

DRUGS (5)
  1. CARBAMAZEPINE [Suspect]
  2. VENLAFAXINE HCL [Suspect]
  3. TOPIRAMATE [Suspect]
  4. DIVALPROEX SODIUM [Suspect]
  5. RISPERIDONE [Suspect]

REACTIONS (10)
  - ACCIDENTAL EXPOSURE [None]
  - ATRIAL FLUTTER [None]
  - HYPOXIA [None]
  - MULTIPLE DRUG OVERDOSE [None]
  - NEUROLEPTIC MALIGNANT SYNDROME [None]
  - NEUTROPHILIA [None]
  - SEROTONIN SYNDROME [None]
  - SHIFT TO THE LEFT [None]
  - SINUS TACHYCARDIA [None]
  - WHITE BLOOD CELL COUNT INCREASED [None]
